FAERS Safety Report 10556806 (Version 2)
Quarter: 2014Q4

REPORT INFORMATION
  Report Type: Spontaneous
  Country: CA (occurrence: CA)
  Receive Date: 20141031
  Receipt Date: 20141126
  Transmission Date: 20150529
  Serious: Yes (Other)
  Sender: FDA-Public Use
  Company Number: CA-PFIZER INC-2014300856

PATIENT
  Age: 89 Year
  Sex: Male

DRUGS (1)
  1. ADVIL ARTHRITIS PAIN [Suspect]
     Active Substance: IBUPROFEN
     Indication: ARTHRITIS

REACTIONS (4)
  - Product size issue [Recovered/Resolved]
  - Dysphagia [Recovered/Resolved]
  - Choking [Recovered/Resolved]
  - Oesophageal pain [Recovered/Resolved]
